FAERS Safety Report 7378868-9 (Version None)
Quarter: 2011Q1

REPORT INFORMATION
  Report Type: 
  Country: None (occurrence: None)
  Receive Date: 20110328
  Receipt Date: 20110315
  Transmission Date: 20110831
  Serious: Yes (Hospitalization)
  Sender: FDA-Public Use
  Company Number: PHHO2011DE04717

PATIENT
  Sex: Female
  Weight: 84 kg

DRUGS (11)
  1. ZOPICLON [Concomitant]
     Indication: SLEEP DISORDER
  2. THYROXIN [Concomitant]
  3. MOVIPREP [Concomitant]
     Indication: CONSTIPATION
  4. METOCLOPRAMID [Concomitant]
  5. BETAHISTINE [Concomitant]
     Indication: VERTIGO
  6. ACETYLCYSTEINE [Concomitant]
     Indication: NASOPHARYNGITIS
  7. IBUPROFEN [Concomitant]
     Indication: PAIN
  8. LORAZEPAM [Concomitant]
     Indication: SLEEP DISORDER
  9. QUILONIUM [Suspect]
     Indication: BIPOLAR DISORDER
  10. CIPRAMIL [Concomitant]
  11. FTY 720 [Suspect]
     Indication: MULTIPLE SCLEROSIS
     Dosage: 0.5 MG, QD
     Route: 048
     Dates: start: 20101124

REACTIONS (3)
  - LOSS OF CONSCIOUSNESS [None]
  - EPILEPSY [None]
  - DISORIENTATION [None]
